FAERS Safety Report 4267251-0 (Version None)
Quarter: 2004Q1

REPORT INFORMATION
  Report Type: 
  Country: None (occurrence: None)
  Receive Date: 20040107
  Receipt Date: 20031229
  Transmission Date: 20041129
  Serious: Yes (Other)
  Sender: FDA-Public Use
  Company Number: HQWYE017305JAN04

PATIENT
  Age: 60 Year
  Sex: Male

DRUGS (1)
  1. CORDARONE [Suspect]

REACTIONS (2)
  - COMPUTERISED TOMOGRAM ABNORMAL [None]
  - LUNG DISORDER [None]
